FAERS Safety Report 5629922-0 (Version None)
Quarter: 2008Q1

REPORT INFORMATION
  Report Type: 
  Country: None (occurrence: None)
  Receive Date: 20080213
  Receipt Date: 20080131
  Transmission Date: 20080703
  Serious: No
  Sender: FDA-Public Use
  Company Number: 02100-EUR-08-0016

PATIENT
  Age: 67 Year
  Sex: Male

DRUGS (5)
  1. PLETAL [Suspect]
     Indication: INTERMITTENT CLAUDICATION
     Dosage: 100 MG, BID ORAL
     Route: 048
     Dates: start: 20070524, end: 20071020
  2. ACETYLSALICYLIC ACID SRT [Concomitant]
  3. CARVEDILOL [Concomitant]
  4. METFORMIN HCL [Concomitant]
  5. GLYBURIDE [Concomitant]

REACTIONS (5)
  - ABDOMINAL DISTENSION [None]
  - ASCITES [None]
  - CARDIAC FAILURE CONGESTIVE [None]
  - CONDITION AGGRAVATED [None]
  - WEIGHT INCREASED [None]
